FAERS Safety Report 9519862 (Version 1)
Quarter: 2013Q3

REPORT INFORMATION
  Report Type: Spontaneous
  Country: US (occurrence: US)
  Receive Date: 20130912
  Receipt Date: 20130912
  Transmission Date: 20140515
  Serious: No
  Sender: FDA-Public Use
  Company Number: US-009507513-1309USA005334

PATIENT
  Sex: Male

DRUGS (1)
  1. TINACTIN CREAM [Suspect]
     Indication: PRODUCT USED FOR UNKNOWN INDICATION
     Dosage: UNK, UNKNOWN
     Route: 061

REACTIONS (3)
  - Nausea [Unknown]
  - Abnormal dreams [Unknown]
  - Fatigue [Unknown]
